FAERS Safety Report 6196576-7 (Version None)
Quarter: 2009Q2

REPORT INFORMATION
  Report Type: 
  Country: None (occurrence: None)
  Receive Date: 20090520
  Receipt Date: 20090518
  Transmission Date: 20091009
  Serious: Yes (Other)
  Sender: FDA-Public Use
  Company Number: A0784752A

PATIENT
  Age: 47 Year
  Sex: Male

DRUGS (1)
  1. COMMIT [Suspect]
     Indication: SMOKING CESSATION THERAPY
     Dosage: 2MG PER DAY
     Route: 002
     Dates: start: 20090517, end: 20090518

REACTIONS (3)
  - COUGH [None]
  - HAEMATEMESIS [None]
  - RETCHING [None]
